FAERS Safety Report 6155361-2 (Version None)
Quarter: 2009Q2

REPORT INFORMATION
  Report Type: 
  Country: None (occurrence: None)
  Receive Date: 20090415
  Receipt Date: 20090407
  Transmission Date: 20091009
  Serious: Yes (Other)
  Sender: FDA-Public Use
  Company Number: BR-AVENTIS-200913658GDDC

PATIENT
  Age: 74 Year
  Sex: Male
  Weight: 64 kg

DRUGS (9)
  1. LANTUS [Suspect]
     Route: 058
  2. LANTUS [Suspect]
     Route: 058
  3. LANTUS [Suspect]
     Route: 058
  4. LIPITOR [Concomitant]
  5. CLORANA [Concomitant]
  6. DIVELOL [Concomitant]
  7. COZAAR [Concomitant]
  8. AAS [Concomitant]
  9. ENDOFOLIN [Concomitant]

REACTIONS (6)
  - CARDIAC ARREST [None]
  - COLD SWEAT [None]
  - CONFUSIONAL STATE [None]
  - HYPERGLYCAEMIA [None]
  - HYPOGLYCAEMIA [None]
  - MUSCULAR WEAKNESS [None]
